FAERS Safety Report 7823842-9 (Version None)
Quarter: 2011Q4

REPORT INFORMATION
  Report Type: 
  Country: None (occurrence: None)
  Receive Date: 20111014
  Receipt Date: 20110921
  Transmission Date: 20120403
  Serious: Yes (Life-Threatening)
  Sender: FDA-Public Use
  Company Number: 2011224022

PATIENT
  Age: 60 Year
  Sex: Female

DRUGS (3)
  1. CYTARABINE [Suspect]
     Indication: LEUKAEMIA
     Dosage: 1000 MG/M2, 2X/DAY, INTRAVENOUS
     Route: 042
     Dates: start: 20100421, end: 20100422
  2. CERUBIDINE [Suspect]
     Indication: LEUKAEMIA
     Dosage: 60 MG/M2, 1X/DAY, INTRAVENOUS
     Route: 042
     Dates: start: 20100421, end: 20100423
  3. AMBISOME [Suspect]
     Dosage: 180 MG, 1X/DAY, INTRAVENOUS
     Route: 042
     Dates: start: 20100421, end: 20100422

REACTIONS (3)
  - CYTOLYTIC HEPATITIS [None]
  - RENAL FAILURE [None]
  - DISSEMINATED INTRAVASCULAR COAGULATION [None]
